FAERS Safety Report 6883024 (Version 1)
Quarter: 2020Q3

REPORT INFORMATION
  Report Type: Report from Study
  Country: US (occurrence: US)
  Receive Date: 20090116
  Receipt Date: 20090116
  Transmission Date: 20201104
  Serious: Yes (Death, Other)
  Sender: FDA-Public Use
  Company Number: US-ROCHE-607628

PATIENT
  Age: 91 Year
  Sex: Female

DRUGS (1)
  1. IBANDRONIC ACID. [Suspect]
     Active Substance: IBANDRONIC ACID
     Indication: PRODUCT USED FOR UNKNOWN INDICATION
     Dosage: FORM:PILL
     Route: 065

REACTIONS (3)
  - Pulmonary thrombosis [Fatal]
  - Fall [None]
  - Bronchitis [Recovering/Resolving]
